FAERS Safety Report 9811378 (Version 1)
Quarter: 2014Q1

REPORT INFORMATION
  Report Type: Report from Study
  Country: US (occurrence: US)
  Receive Date: 20140110
  Receipt Date: 20140110
  Transmission Date: 20141002
  Serious: Yes (Hospitalization)
  Sender: FDA-Public Use
  Company Number: US-EXELIXIS-XL18413003863

PATIENT
  Age: 80 Year
  Sex: Female

DRUGS (1)
  1. XL184 [Suspect]
     Indication: NON-SMALL CELL LUNG CANCER
     Dosage: 60 MG, QD
     Route: 048
     Dates: start: 20131015, end: 20131029

REACTIONS (2)
  - Cholecystitis [Unknown]
  - Rash maculo-papular [Unknown]
